FAERS Safety Report 19738400 (Version 1)
Quarter: 2021Q3

REPORT INFORMATION
  Report Type: Spontaneous
  Country: US (occurrence: US)
  Receive Date: 20210823
  Receipt Date: 20210823
  Transmission Date: 20211014
  Serious: No
  Sender: FDA-Public Use
  Company Number: US-TAKEDA-2021TUS051546

PATIENT
  Age: 78 Year
  Sex: Male

DRUGS (1)
  1. FOSRENOL [Suspect]
     Active Substance: LANTHANUM CARBONATE
     Indication: PHOSPHORUS METABOLISM DISORDER
     Route: 065

REACTIONS (4)
  - Illness [Unknown]
  - Vomiting [Unknown]
  - Duodenogastric reflux [Unknown]
  - Nausea [Unknown]
